FAERS Safety Report 7902405-0 (Version None)
Quarter: 2011Q4

REPORT INFORMATION
  Report Type: 
  Country: None (occurrence: None)
  Receive Date: 20111108
  Receipt Date: 20111108
  Transmission Date: 20120403
  Serious: Yes (Hospitalization, Other)
  Sender: FDA-Public Use
  Company Number: FR-PFIZER INC-2007008623

PATIENT
  Age: 9 Year
  Sex: Male
  Weight: 22 kg

DRUGS (17)
  1. CIPROFLOXACIN [Suspect]
     Dosage: 200MG/100ML; 4DF,INTERVAL: EVERY DAY
     Route: 042
     Dates: start: 20061231, end: 20070109
  2. IMIPENEM AND CILASTATIN SODIUM [Concomitant]
  3. CANCIDAS [Concomitant]
     Route: 042
     Dates: start: 20070106, end: 20070130
  4. ZYVOX [Suspect]
     Indication: LUNG INFECTION
     Dosage: 900MG/DAY
     Route: 042
     Dates: start: 20070106, end: 20070109
  5. BACTRIM [Suspect]
     Dosage: 3 DF,INTERVAL: EVERY DAY
     Route: 048
     Dates: end: 20070109
  6. ZOFRAN [Concomitant]
     Route: 042
     Dates: start: 20061228, end: 20070130
  7. LACTULOSE [Concomitant]
  8. CLORAZEPATE DIPOTASSIUM [Concomitant]
  9. NALBUPHINE HYDROCHLORIDE [Concomitant]
  10. VORICONAZOLE [Suspect]
     Dosage: 1 DF/DAY
     Route: 042
     Dates: end: 20070109
  11. AMINO ACIDS [Concomitant]
     Dosage: 1.5 LITERS
     Route: 042
     Dates: start: 20070101, end: 20070130
  12. PARAFFIN, LIQUID [Concomitant]
  13. AMBISOME [Concomitant]
     Route: 042
     Dates: start: 20070104, end: 20070129
  14. LEUCOVORIN CALCIUM [Concomitant]
  15. NEUPOGEN [Suspect]
     Dosage: 1 DF,INTERVAL: EVERY DAY
     Route: 042
     Dates: start: 20070101, end: 20070109
  16. TIENAM [Concomitant]
     Route: 042
     Dates: start: 20070101, end: 20070130
  17. AMPHOTERICIN B [Concomitant]

REACTIONS (2)
  - HYPOTENSION [None]
  - HYPOGLYCAEMIA [None]
